FAERS Safety Report 5836893-0 (Version None)
Quarter: 2008Q3

REPORT INFORMATION
  Report Type: 
  Country: None (occurrence: None)
  Receive Date: 20080805
  Receipt Date: 20080731
  Transmission Date: 20090109
  Serious: Yes (Other)
  Sender: FDA-Public Use
  Company Number: A0740653A

PATIENT
  Age: 80 Year
  Sex: Female

DRUGS (3)
  1. UREA HYDROGEN PEROXIDE (FORMULATION UNKNOWN) (UREA HYDROGEN PEROXIDE) [Suspect]
     Indication: CERUMEN IMPACTION
     Dosage: AURAL
     Route: 001
  2. LEVOTHYROXINE SODIUM [Concomitant]
  3. FLUVASTATIN SODIUM [Concomitant]

REACTIONS (4)
  - CHEST PAIN [None]
  - EAR HAEMORRHAGE [None]
  - EAR INFECTION [None]
  - THROAT IRRITATION [None]
